FAERS Safety Report 21916539 (Version 1)
Quarter: 2023Q1

REPORT INFORMATION
  Report Type: Spontaneous
  Country: US (occurrence: US)
  Receive Date: 20230126
  Receipt Date: 20230126
  Transmission Date: 20230418
  Serious: No
  Sender: FDA-Public Use
  Company Number: US-Covis Pharma GmbH-2023COV00066

PATIENT
  Age: 67 Year
  Sex: Female

DRUGS (1)
  1. ALVESCO [Suspect]
     Active Substance: CICLESONIDE
     Indication: Asthma
     Dosage: 2 PUFFS BID
     Route: 065

REACTIONS (2)
  - Feeling abnormal [Not Recovered/Not Resolved]
  - Incorrect dose administered [Unknown]
